FAERS Safety Report 12603945 (Version 1)
Quarter: 2016Q3

REPORT INFORMATION
  Report Type: Report from Study
  Country: US (occurrence: US)
  Receive Date: 20160728
  Receipt Date: 20160728
  Transmission Date: 20161109
  Serious: Yes (Other)
  Sender: FDA-Public Use
  Company Number: US-BAXALTA-2016BLT005372

PATIENT
  Age: 69 Year
  Sex: Male

DRUGS (1)
  1. HYQVIA [Suspect]
     Active Substance: HUMAN IMMUNOGLOBULIN G\HYALURONIDASE RECOMBINANT HUMAN
     Indication: IMMUNODEFICIENCY COMMON VARIABLE
     Dosage: UNK UNK, EVERY 4 WK
     Route: 058

REACTIONS (4)
  - Infusion site swelling [Unknown]
  - Infusion site ulcer [Unknown]
  - Infusion site haemorrhage [Unknown]
  - Infusion site infection [Recovered/Resolved]

NARRATIVE: CASE EVENT DATE: 201602
